FAERS Safety Report 9062712 (Version 6)
Quarter: 2016Q3

REPORT INFORMATION
  Report Type: Spontaneous
  Country: US (occurrence: US)
  Receive Date: 20130213
  Receipt Date: 20160927
  Transmission Date: 20161109
  Serious: Yes (Other)
  Sender: FDA-Public Use
  Company Number: US-BAYER-2013-017116

PATIENT
  Age: 57 Year
  Sex: Male

DRUGS (5)
  1. AVELOX [Suspect]
     Active Substance: MOXIFLOXACIN HYDROCHLORIDE
     Indication: INFLUENZA LIKE ILLNESS
     Dosage: 400 MG, UNK
     Dates: start: 20110705, end: 20110707
  2. AVELOX [Suspect]
     Active Substance: MOXIFLOXACIN HYDROCHLORIDE
     Indication: BACTERIAL INFECTION
  3. OXYCODONE W/PARACETAMOL [Concomitant]
     Active Substance: ACETAMINOPHEN\OXYCODONE HYDROCHLORIDE
  4. HYDROCODONE [Concomitant]
     Active Substance: HYDROCODONE
  5. AMOXICILLIN. [Concomitant]
     Active Substance: AMOXICILLIN

REACTIONS (33)
  - Uveitis [None]
  - Pigment dispersion syndrome [None]
  - Vitreous floaters [None]
  - Quality of life decreased [None]
  - Drug prescribing error [None]
  - Iris disorder [None]
  - Eye degenerative disorder [None]
  - Blindness [None]
  - Injury [None]
  - Pain [None]
  - Intraocular pressure increased [None]
  - Visual impairment [None]
  - Eye pain [None]
  - Ocular hyperaemia [None]
  - Iridocyclitis [None]
  - Emotional distress [None]
  - Photophobia [None]
  - Glaucoma [None]
  - Eye swelling [None]
  - Deposit eye [None]
  - Medication error [None]
  - Ophthalmoplegia [None]
  - Eye injury [None]
  - Vitritis [None]
  - Anterior chamber inflammation [None]
  - Product use issue [None]
  - Anhedonia [None]
  - Iris hypopigmentation [None]
  - Iris transillumination defect [None]
  - Product use issue [None]
  - Visual acuity reduced [None]
  - Vision blurred [None]
  - Ciliary body disorder [None]

NARRATIVE: CASE EVENT DATE: 20110705
